FAERS Safety Report 4494786-8 (Version None)
Quarter: 2004Q4

REPORT INFORMATION
  Report Type: 
  Country: None (occurrence: None)
  Receive Date: 20041103
  Receipt Date: 20041026
  Transmission Date: 20050328
  Serious: Yes (Death, Hospitalization)
  Sender: FDA-Public Use
  Company Number: A-US2004-07521

PATIENT
  Age: 63 Year
  Sex: Female
  Weight: 56 kg

DRUGS (12)
  1. TRACLEER [Suspect]
     Indication: PULMONARY HYPERTENSION
     Dosage: 125 MG, BID, ORAL; 62.5 MG, BID, ORAL; 62.5 MG, BID, ORAL; 125 MG,  BID, ORAL
     Route: 048
     Dates: start: 20031107, end: 20031206
  2. TRACLEER [Suspect]
     Indication: PULMONARY HYPERTENSION
     Dosage: 125 MG, BID, ORAL; 62.5 MG, BID, ORAL; 62.5 MG, BID, ORAL; 125 MG,  BID, ORAL
     Route: 048
     Dates: start: 20041207, end: 20040322
  3. TRACLEER [Suspect]
     Indication: PULMONARY HYPERTENSION
     Dosage: 125 MG, BID, ORAL; 62.5 MG, BID, ORAL; 62.5 MG, BID, ORAL; 125 MG,  BID, ORAL
     Route: 048
     Dates: start: 20040323, end: 20040516
  4. TRACLEER [Suspect]
     Indication: PULMONARY HYPERTENSION
     Dosage: 125 MG, BID, ORAL; 62.5 MG, BID, ORAL; 62.5 MG, BID, ORAL; 125 MG,  BID, ORAL
     Route: 048
     Dates: start: 20040517
  5. VIAGRA [Suspect]
     Dosage: 50 MG, TID, ORAL
     Route: 048
     Dates: start: 20040901
  6. ALBUTEROL [Concomitant]
  7. ACTOS [Concomitant]
  8. ZAROXOLYN [Concomitant]
  9. OXYGEN (OXYGEN) [Concomitant]
  10. LASIX [Concomitant]
  11. PREDNISONE [Concomitant]
  12. SPIRIVA [Concomitant]

REACTIONS (6)
  - DISEASE PROGRESSION [None]
  - DRUG INEFFECTIVE [None]
  - FEELING ABNORMAL [None]
  - GENERAL PHYSICAL HEALTH DETERIORATION [None]
  - PULMONARY VENO-OCCLUSIVE DISEASE [None]
  - RIGHT VENTRICULAR FAILURE [None]
